FAERS Safety Report 24425635 (Version 1)
Quarter: 2024Q4

REPORT INFORMATION
  Report Type: Report from Study
  Country: ZA (occurrence: ZA)
  Receive Date: 20241011
  Receipt Date: 20241011
  Transmission Date: 20250115
  Serious: Yes (Hospitalization)
  Sender: TAKEDA
  Company Number: ZA-TAKEDA-2024TUS086932

PATIENT
  Age: 2 Year
  Sex: Male

DRUGS (2)
  1. HUMAN IMMUNOGLOBULIN G [Suspect]
     Active Substance: HUMAN IMMUNOGLOBULIN G
     Indication: Transient hypogammaglobulinaemia of infancy
     Dosage: 2 GRAM, 1/WEEK
     Route: 058
     Dates: start: 20231126
  2. EMLA [Suspect]
     Active Substance: LIDOCAINE\PRILOCAINE
     Indication: Product used for unknown indication
     Dosage: UNK
     Route: 065

REACTIONS (5)
  - Rhinovirus infection [Recovering/Resolving]
  - Adenovirus infection [Recovering/Resolving]
  - Viral infection [Recovering/Resolving]
  - Blood immunoglobulin G decreased [Recovering/Resolving]
  - Dermatitis contact [Recovered/Resolved]

NARRATIVE: CASE EVENT DATE: 20240820
